FAERS Safety Report 22518548 (Version 1)
Quarter: 2023Q2

REPORT INFORMATION
  Report Type: Spontaneous
  Country: US (occurrence: US)
  Receive Date: 20230605
  Receipt Date: 20230605
  Transmission Date: 20230721
  Serious: Yes (Hospitalization, Other)
  Sender: FDA-Public Use
  Company Number: US-NOVOPROD-1070070

PATIENT
  Sex: Female

DRUGS (1)
  1. OZEMPIC [Suspect]
     Active Substance: SEMAGLUTIDE
     Indication: Product used for unknown indication
     Dosage: 1 MG (ON AND OFF)
     Route: 058
     Dates: start: 2018

REACTIONS (2)
  - Pancreatic atrophy [Not Recovered/Not Resolved]
  - Vomiting [Not Recovered/Not Resolved]
